FAERS Safety Report 7668584-8 (Version None)
Quarter: 2011Q3

REPORT INFORMATION
  Report Type: 
  Country: None (occurrence: None)
  Receive Date: 20110808
  Receipt Date: 20110808
  Transmission Date: 20111222
  Serious: No
  Sender: FDA-Public Use
  Company Number: None

PATIENT
  Age: 26 Year
  Sex: Female
  Weight: 108.86 kg

DRUGS (2)
  1. ZOLOFT [Suspect]
     Indication: DEPRESSION
     Dosage: ???
     Route: 048
     Dates: start: 20010101, end: 20040301
  2. ZOLOFT [Suspect]
     Indication: PREMENSTRUAL SYNDROME
     Dosage: ???
     Route: 048
     Dates: start: 20010101, end: 20040301

REACTIONS (3)
  - BIPOLAR DISORDER [None]
  - PREMENSTRUAL SYNDROME [None]
  - ATTENTION DEFICIT/HYPERACTIVITY DISORDER [None]
